FAERS Safety Report 14343481 (Version 4)
Quarter: 2018Q2

REPORT INFORMATION
  Report Type: Spontaneous
  Country: US (occurrence: US)
  Receive Date: 20180102
  Receipt Date: 20180424
  Transmission Date: 20180711
  Serious: Yes (Hospitalization, Other)
  Sender: FDA-Public Use
  Company Number: US-PFIZER INC-2017555036

PATIENT
  Sex: Female

DRUGS (1)
  1. IBRANCE [Suspect]
     Active Substance: PALBOCICLIB
     Indication: NEOPLASM MALIGNANT
     Dosage: UNK

REACTIONS (6)
  - Memory impairment [Unknown]
  - Fall [Unknown]
  - Facial bones fracture [Unknown]
  - Neoplasm progression [Unknown]
  - Contusion [Unknown]
  - Pain [Unknown]
